FAERS Safety Report 17841631 (Version 1)
Quarter: 2020Q2

REPORT INFORMATION
  Report Type: Spontaneous
  Country: US (occurrence: US)
  Receive Date: 20200529
  Receipt Date: 20200529
  Transmission Date: 20200714
  Serious: No
  Sender: FDA-Public Use
  Company Number: US-TEVA-2020-US-1240672

PATIENT
  Age: 72 Year
  Sex: Female

DRUGS (1)
  1. RALOXIFENE HYDROCHLORIDE TEVA [Suspect]
     Active Substance: RALOXIFENE HYDROCHLORIDE
     Route: 065
     Dates: start: 202001

REACTIONS (2)
  - Mouth ulceration [Not Recovered/Not Resolved]
  - Product substitution issue [Unknown]

NARRATIVE: CASE EVENT DATE: 202001
